FAERS Safety Report 5920429-X (Version None)
Quarter: 2008Q4

REPORT INFORMATION
  Report Type: 
  Country: None (occurrence: None)
  Receive Date: 20081014
  Receipt Date: 20080930
  Transmission Date: 20090506
  Serious: Yes (Death, Hospitalization, Other)
  Sender: FDA-Public Use
  Company Number: 53045

PATIENT
  Age: 31 Year
  Sex: Male

DRUGS (1)
  1. CYCLOSPORINE [Suspect]
     Indication: IMMUNOSUPPRESSION

REACTIONS (16)
  - BRAIN ABSCESS [None]
  - BRAIN STEM SYNDROME [None]
  - BRONCHOPULMONARY ASPERGILLOSIS [None]
  - CEREBRAL INFARCTION [None]
  - CYTOMEGALOVIRUS COLITIS [None]
  - FUNGAL INFECTION [None]
  - HALLUCINATION [None]
  - HYDROCEPHALUS [None]
  - KIDNEY TRANSPLANT REJECTION [None]
  - NEUROLOGICAL DECOMPENSATION [None]
  - POSTURING [None]
  - PSEUDOMONAS INFECTION [None]
  - PUPIL FIXED [None]
  - RENAL IMPAIRMENT [None]
  - RESPIRATORY FAILURE [None]
  - RESPIRATORY MONILIASIS [None]
